FAERS Safety Report 5363797-2 (Version None)
Quarter: 2007Q2

REPORT INFORMATION
  Report Type: 
  Country: None (occurrence: None)
  Receive Date: 20070620
  Receipt Date: 20070608
  Transmission Date: 20071010
  Serious: Yes (Death, Life-Threatening, Disabling)
  Sender: FDA-Public Use
  Company Number: US-MERCK-97110706

PATIENT
  Age: 71 Year
  Sex: Female

DRUGS (4)
  1. ZOCOR [Suspect]
     Route: 048
     Dates: start: 19940101, end: 19960105
  2. LOTREL [Concomitant]
     Route: 065
  3. ECOTRIN [Concomitant]
     Route: 065
  4. RILUTEK [Concomitant]
     Route: 065

REACTIONS (2)
  - AMYOTROPHIC LATERAL SCLEROSIS [None]
  - DYSARTHRIA [None]
